FAERS Safety Report 24422855 (Version 2)
Quarter: 2024Q4

REPORT INFORMATION
  Report Type: Spontaneous
  Country: IN (occurrence: IN)
  Receive Date: 20241010
  Receipt Date: 20241120
  Transmission Date: 20250114
  Serious: Yes (Hospitalization, Other)
  Sender: PFIZER
  Company Number: IN-PFIZER INC-PV202400131266

PATIENT
  Age: 55 Year
  Sex: Male

DRUGS (4)
  1. LORLATINIB [Suspect]
     Active Substance: LORLATINIB
     Indication: Lung neoplasm malignant
     Dosage: 100 MG, 1X/DAY
     Route: 048
  2. LEVERA [LEVETIRACETAM] [Concomitant]
     Dosage: 500 MG, 2X/DAY (1-0-1 AFTER FOOD-DAILY-15 DAYS/TIMING 1- AFTER BREAKFAST, 1-AFTER DINNER)
  3. BI FOLATE [BIOTIN;LEVOMEFOLIC ACID;MECOBALAMIN;PYRIDOXAL PHOSPHATE] [Concomitant]
     Dosage: UNK UNK, 1X/DAY (0-1-0 AFTER FOOD-DAILY-15 DAYS/TIMING 1- AFTER LUNCH)
  4. XARELTO [Concomitant]
     Active Substance: RIVAROXABAN
     Dosage: 15 MG, 2X/DAY 1-0-1 AFTER FOOD DAILY-15 DAYS/ TIMING 1-AFTER BREAKFAST, 1-AFTER DINNER)

REACTIONS (6)
  - Pulmonary embolism [Unknown]
  - Ascites [Unknown]
  - Asthenia [Unknown]
  - Cough [Unknown]
  - Dyspnoea [Unknown]
  - Amnesia [Unknown]

NARRATIVE: CASE EVENT DATE: 20241004
